FAERS Safety Report 17730272 (Version 1)
Quarter: 2020Q2

REPORT INFORMATION
  Report Type: Spontaneous
  Country: US (occurrence: US)
  Receive Date: 20200430
  Receipt Date: 20200430
  Transmission Date: 20200714
  Serious: No
  Sender: FDA-Public Use
  Company Number: US-BAYER-2020-070957

PATIENT
  Age: 21 Year
  Sex: Female

DRUGS (1)
  1. KYLEENA [Suspect]
     Active Substance: LEVONORGESTREL
     Indication: CONTRACEPTION
     Dosage: 17.5 ?G PER DAY CONTINUOUSLY
     Route: 015
     Dates: start: 201704

REACTIONS (4)
  - Amenorrhoea [Recovered/Resolved]
  - Abdominal pain lower [Not Recovered/Not Resolved]
  - Acne [Not Recovered/Not Resolved]
  - Vaginal haemorrhage [Not Recovered/Not Resolved]

NARRATIVE: CASE EVENT DATE: 201704
